FAERS Safety Report 5528733-4 (Version None)
Quarter: 2007Q4

REPORT INFORMATION
  Report Type: 
  Country: None (occurrence: None)
  Receive Date: 20071113
  Receipt Date: 20070626
  Transmission Date: 20080405
  Serious: Yes (Hospitalization)
  Sender: FDA-Public Use
  Company Number: 2007-160553-NL

PATIENT
  Age: 26 Year
  Sex: Female
  Weight: 64.41 kg

DRUGS (5)
  1. PUREGON [Suspect]
     Indication: OOCYTE DONATION
     Dosage: 150 IU QD SUBCUTANEOUS, PREMIXED VIALS
     Route: 058
     Dates: start: 20070602, end: 20070604
  2. PUREGON [Suspect]
     Indication: OOCYTE DONATION
     Dosage: 75 IU QD SUBCUTANEOUS, PREMIXED VIALS
     Route: 058
     Dates: start: 20070605, end: 20070608
  3. CHORIONIC GONADOTROPIN [Suspect]
     Indication: OOCYTE DONATION
     Dosage: 10000 IU SUBCUTANEOUS
     Route: 058
     Dates: start: 20070602, end: 20070605
  4. REPRONEX [Suspect]
     Indication: OOCYTE DONATION
     Dosage: 75 IU QD SUBCUTANEOUS
     Route: 058
     Dates: start: 20070602, end: 20070605
  5. REPRONEX [Suspect]
     Indication: OOCYTE DONATION
     Dosage: 75 IU QD SUBCUTANEOUS
     Route: 058
     Dates: start: 20070607, end: 20070608

REACTIONS (1)
  - OVARIAN HYPERSTIMULATION SYNDROME [None]
